FAERS Safety Report 20938908 (Version 1)
Quarter: 2022Q2

REPORT INFORMATION
  Report Type: Report from Study
  Country: BR (occurrence: BR)
  Receive Date: 20220609
  Receipt Date: 20220609
  Transmission Date: 20220721
  Serious: Yes (Other)
  Sender: FDA-Public Use
  Company Number: BR-JNJFOC-20220604430

PATIENT
  Sex: Female
  Weight: 74 kg

DRUGS (7)
  1. SIMPONI [Suspect]
     Active Substance: GOLIMUMAB
     Indication: Ankylosing spondylitis
     Route: 058
     Dates: start: 20200901
  2. SIMPONI [Suspect]
     Active Substance: GOLIMUMAB
  3. PREGABALIN [Concomitant]
     Active Substance: PREGABALIN
  4. DIAZEPAM [Concomitant]
     Active Substance: DIAZEPAM
  5. XARELTO [Concomitant]
     Active Substance: RIVAROXABAN
  6. VENLAFAXINE [Concomitant]
     Active Substance: VENLAFAXINE HYDROCHLORIDE
  7. ROSUVASTATIN [Concomitant]
     Active Substance: ROSUVASTATIN

REACTIONS (5)
  - Uveitis [Recovering/Resolving]
  - Nodule [Not Recovered/Not Resolved]
  - Spinal pain [Unknown]
  - Abdominal discomfort [Unknown]
  - Influenza [Recovering/Resolving]
